FAERS Safety Report 17032931 (Version 1)
Quarter: 2019Q4

REPORT INFORMATION
  Report Type: Spontaneous
  Country: CA (occurrence: CA)
  Receive Date: 20191114
  Receipt Date: 20191114
  Transmission Date: 20200122
  Serious: Yes (Disabling)
  Sender: FDA-Public Use
  Company Number: CA-ALLERGAN-1944994US

PATIENT
  Sex: Female

DRUGS (1)
  1. BOTOX [Suspect]
     Active Substance: ONABOTULINUMTOXINA
     Indication: MIGRAINE
     Dosage: 200 UNITS, Q3MONTHS
     Route: 058

REACTIONS (5)
  - Discomfort [Recovering/Resolving]
  - Muscle tightness [Recovering/Resolving]
  - Neck pain [Recovering/Resolving]
  - Off label use [Unknown]
  - Musculoskeletal pain [Recovering/Resolving]
